FAERS Safety Report 4743472-5 (Version None)
Quarter: 2005Q3

REPORT INFORMATION
  Report Type: 
  Country: None (occurrence: None)
  Receive Date: 20050809
  Receipt Date: 20050725
  Transmission Date: 20060218
  Serious: Yes (Hospitalization)
  Sender: FDA-Public Use
  Company Number: 2005EU001681

PATIENT
  Age: 49 Year
  Sex: Female

DRUGS (1)
  1. PROGRAF [Suspect]
     Indication: GLOMERULONEPHRITIS FOCAL
     Dosage: /D

REACTIONS (2)
  - ENCEPHALITIS [None]
  - VASCULITIS [None]
